FAERS Safety Report 7716215-0 (Version None)
Quarter: 2011Q3

REPORT INFORMATION
  Report Type: 
  Country: None (occurrence: None)
  Receive Date: 20110829
  Receipt Date: 20110819
  Transmission Date: 20111222
  Serious: Yes (Hospitalization, Other)
  Sender: FDA-Public Use
  Company Number: AU-GENZYME-THYM-1002713

PATIENT
  Sex: Male
  Weight: 83 kg

DRUGS (22)
  1. FLUDARA [Suspect]
     Indication: BONE MARROW CONDITIONING REGIMEN
     Dosage: UNK %, UNK
     Route: 065
  2. SOLUTIONS FOR PARENTERAL NUTRITION [Concomitant]
     Indication: PARENTERAL NUTRITION
     Dosage: UNK
     Route: 065
     Dates: start: 20110407
  3. MELPHALAN [Concomitant]
     Indication: BONE MARROW CONDITIONING REGIMEN
     Dosage: UNK UNK, UNK
     Route: 065
  4. BACTRIM [Concomitant]
     Dosage: 1600 MG, 2X/W
     Route: 048
     Dates: start: 20110424
  5. CYCLOSPORINE [Concomitant]
     Dosage: 250 MG, QD
     Route: 042
     Dates: start: 20110413, end: 20110418
  6. CYCLOSPORINE [Concomitant]
     Dosage: 250 MG, BID
     Route: 048
     Dates: start: 20110418
  7. PREDNISOLONE [Concomitant]
     Indication: PROPHYLAXIS AGAINST GRAFT VERSUS HOST DISEASE
     Dosage: 25 MG, QD
     Route: 048
     Dates: start: 20110423, end: 20110426
  8. CYCLOSPORINE [Concomitant]
     Dosage: 150 MG, QD
     Route: 042
     Dates: start: 20110412, end: 20110413
  9. ACYCLOVIR [Concomitant]
     Indication: ANTIVIRAL PROPHYLAXIS
     Dosage: 250 MG, TID
     Route: 065
     Dates: start: 20110401, end: 20110418
  10. METHYLPREDNISOLONE [Concomitant]
     Indication: PROPHYLAXIS AGAINST GRAFT VERSUS HOST DISEASE
     Dosage: 400 MG, QD
     Route: 042
     Dates: start: 20110416, end: 20110421
  11. BACTRIM [Concomitant]
     Indication: ANTIFUNGAL PROPHYLAXIS
     Dosage: 320 MG, 2X/W
     Route: 048
     Dates: start: 20110424
  12. CYCLOSPORINE [Concomitant]
     Dosage: 225 MG, QD
     Route: 042
     Dates: start: 20110401, end: 20110412
  13. PREDNISOLONE [Concomitant]
     Dosage: 50 MG, QD
     Route: 048
     Dates: start: 20110422, end: 20110422
  14. NEUPOGEN [Concomitant]
     Indication: COLONY STIMULATING FACTOR THERAPY
     Dosage: 480 MCG, UNK
     Route: 058
     Dates: start: 20110407
  15. CYCLOSPORINE [Concomitant]
     Indication: PROPHYLAXIS AGAINST GRAFT VERSUS HOST DISEASE
     Dosage: 250 MG, QD
     Route: 042
     Dates: start: 20110322, end: 20110401
  16. PREDNISOLONE [Concomitant]
     Dosage: 12.5 MG, QD
     Route: 048
     Dates: start: 20110426
  17. NOXAFIL [Concomitant]
     Indication: ANTIFUNGAL PROPHYLAXIS
     Dosage: 200 MG, TID
     Route: 048
     Dates: start: 20110101
  18. THYMOGLOBULIN [Suspect]
     Indication: BONE MARROW CONDITIONING REGIMEN
     Dosage: 0.5 MG/KG, QD
     Route: 042
     Dates: start: 20110321, end: 20110321
  19. THYMOGLOBULIN [Suspect]
     Dosage: 2 MG/KG, QD
     Dates: start: 20110322, end: 20110323
  20. URSO FALK [Concomitant]
     Indication: PROPHYLAXIS
     Dosage: 500 MG, BID
     Route: 048
     Dates: start: 20110101
  21. PANTOPRAZOLE [Concomitant]
     Indication: GASTROOESOPHAGEAL REFLUX PROPHYLAXIS
     Dosage: 40 MG, QD
     Route: 048
     Dates: end: 20110428
  22. PANTOPRAZOLE [Concomitant]
     Dosage: 80 MG, QD
     Route: 048
     Dates: start: 20110428

REACTIONS (5)
  - CYTOMEGALOVIRUS INFECTION [None]
  - INFECTION [None]
  - SEPTIC SHOCK [None]
  - NEUTROPENIA [None]
  - ENGRAFTMENT SYNDROME [None]
